FAERS Safety Report 14141346 (Version 10)
Quarter: 2022Q4

REPORT INFORMATION
  Report Type: Spontaneous
  Country: GB (occurrence: GB)
  Receive Date: 20171030
  Receipt Date: 20221205
  Transmission Date: 20230113
  Serious: Yes (Death, Other)
  Sender: FDA-Public Use
  Company Number: GB-PFIZER INC-2017439781

PATIENT
  Age: 29 Year
  Sex: Male

DRUGS (5)
  1. DIAZEPAM [Suspect]
     Active Substance: DIAZEPAM
     Indication: Product used for unknown indication
     Route: 065
  2. TRAMADOL HYDROCHLORIDE [Suspect]
     Active Substance: TRAMADOL HYDROCHLORIDE
     Indication: Product used for unknown indication
     Route: 065
  3. LYRICA [Suspect]
     Active Substance: PREGABALIN
     Indication: Product used for unknown indication
     Route: 065
  4. TRAMADOL [Suspect]
     Active Substance: TRAMADOL
     Indication: Product used for unknown indication
     Route: 065
  5. ALCOHOL [Suspect]
     Active Substance: ALCOHOL
     Indication: Product used for unknown indication
     Route: 065

REACTIONS (11)
  - Contusion [Fatal]
  - Injury [Fatal]
  - Completed suicide [Fatal]
  - Prescription drug used without a prescription [Fatal]
  - Behaviour disorder [Unknown]
  - Intentional product misuse [Unknown]
  - Eye contusion [Unknown]
  - Blood alcohol increased [Unknown]
  - Aggression [Unknown]
  - Contraindicated product administered [Unknown]
  - Drug abuse [Unknown]

NARRATIVE: CASE EVENT DATE: 20170811
